FAERS Safety Report 17245558 (Version 1)
Quarter: 2020Q1

REPORT INFORMATION
  Report Type: Spontaneous
  Country: FR (occurrence: FR)
  Receive Date: 20200108
  Receipt Date: 20200108
  Transmission Date: 20200409
  Serious: Yes (Hospitalization)
  Sender: FDA-Public Use
  Company Number: FR-TEVA-2020-FR-1163681

PATIENT
  Age: 17 Year
  Sex: Male
  Weight: 59 kg

DRUGS (8)
  1. DOXORUBICINE TEVA [Suspect]
     Active Substance: DOXORUBICIN
     Indication: EWING^S SARCOMA
     Dosage: 33 MG (20MG/M2)
     Route: 042
     Dates: start: 20190812, end: 20190927
  2. IFOSFAMIDE EG [Concomitant]
     Active Substance: IFOSFAMIDE
     Indication: EWING^S SARCOMA
     Dosage: 4890 MG (3000 MG/M2)
     Route: 042
     Dates: start: 20190812
  3. METHYLPREDNISOLONE. [Concomitant]
     Active Substance: METHYLPREDNISOLONE
     Indication: PROPHYLAXIS OF NAUSEA AND VOMITING
     Dosage: 120 MG, CYCLICAL
     Route: 042
     Dates: start: 20190812
  4. VARUBY [Concomitant]
     Active Substance: ROLAPITANT
     Indication: PROPHYLAXIS OF NAUSEA AND VOMITING
     Dosage: 180 MG, CYCLICAL
     Route: 048
     Dates: start: 20190812
  5. ETOPOSIDE TEVA [Suspect]
     Active Substance: ETOPOSIDE
     Indication: EWING^S SARCOMA
     Dosage: 245 MG(150MG/M2)
     Route: 042
     Dates: start: 20190812
  6. MESNA EG [Concomitant]
     Active Substance: MESNA
     Indication: PROPHYLAXIS URINARY TRACT INFECTION
     Dosage: 5868 MG (3600 MG/M2/JOUR)
     Route: 042
     Dates: start: 20190812
  7. ZOPHREN [Concomitant]
     Active Substance: ONDANSETRON
     Indication: PROPHYLAXIS OF NAUSEA AND VOMITING
     Dosage: 8 MG, CYCLICAL
     Route: 042
     Dates: start: 20190812
  8. VINCRISTINE TEVA [Concomitant]
     Active Substance: VINCRISTINE
     Indication: EWING^S SARCOMA
     Dosage: 2 MG, CYCLICAL
     Route: 042
     Dates: start: 20190812

REACTIONS (2)
  - Cholestatic liver injury [Recovering/Resolving]
  - Diarrhoea [Recovered/Resolved]

NARRATIVE: CASE EVENT DATE: 20190923
